FAERS Safety Report 18782869 (Version 1)
Quarter: 2021Q1

REPORT INFORMATION
  Report Type: Spontaneous
  Country: NL (occurrence: NL)
  Receive Date: 20210125
  Receipt Date: 20210125
  Transmission Date: 20210419
  Serious: Yes (Other)
  Sender: FDA-Public Use
  Company Number: NL-MYLANLABS-2021M1004023

PATIENT
  Age: 37 Year
  Sex: Male

DRUGS (2)
  1. HYDROCHLOROTHIAZIDE. [Suspect]
     Active Substance: HYDROCHLOROTHIAZIDE
     Indication: PRODUCT USED FOR UNKNOWN INDICATION
     Dosage: 14 DOSAGE FORM, 14 TABLETS....
     Route: 048
  2. TERIFLUNOMIDE. [Suspect]
     Active Substance: TERIFLUNOMIDE
     Indication: RELAPSING-REMITTING MULTIPLE SCLEROSIS
     Dosage: 48 DOSAGE FORM, 48 TABLETS
     Route: 048

REACTIONS (4)
  - Pollakiuria [Unknown]
  - Overdose [Unknown]
  - Prescription drug used without a prescription [Unknown]
  - Poisoning [Unknown]
